FAERS Safety Report 7365686-0 (Version None)
Quarter: 2011Q1

REPORT INFORMATION
  Report Type: 
  Country: None (occurrence: None)
  Receive Date: 20110322
  Receipt Date: 20110214
  Transmission Date: 20110831
  Serious: Yes (Hospitalization, Other)
  Sender: FDA-Public Use
  Company Number: US-BAYER-201030179NA

PATIENT
  Sex: Female
  Weight: 100.68 kg

DRUGS (1)
  1. YASMIN [Suspect]
     Route: 048
     Dates: start: 20051001

REACTIONS (1)
  - DEEP VEIN THROMBOSIS [None]
